FAERS Safety Report 18042872 (Version 1)
Quarter: 2020Q3

REPORT INFORMATION
  Report Type: Spontaneous
  Country: US (occurrence: US)
  Receive Date: 20200717
  Receipt Date: 20200717
  Transmission Date: 20201103
  Serious: Yes (Hospitalization)
  Sender: FDA-Public Use
  Company Number: None

PATIENT
  Age: 29 Year
  Sex: Female
  Weight: 52 kg

DRUGS (1)
  1. FENTANYL (FENTANYL 4MCG/ML NACL 0.9% INJ,BAG,250ML) [Suspect]
     Active Substance: FENTANYL
     Indication: COLONOSCOPY
     Dosage: ?          OTHER STRENGTH:4MCG/ML, 250ML;?
     Route: 042
     Dates: start: 20200715, end: 20200715

REACTIONS (1)
  - Anaphylactic reaction [None]

NARRATIVE: CASE EVENT DATE: 20200715
